FAERS Safety Report 13110892 (Version 3)
Quarter: 2017Q2

REPORT INFORMATION
  Report Type: Report from Study
  Country: US (occurrence: US)
  Receive Date: 20170112
  Receipt Date: 20170516
  Transmission Date: 20170830
  Serious: Yes (Other)
  Sender: FDA-Public Use
  Company Number: US-EXELIXIS-CABO-17007921

PATIENT
  Sex: Male

DRUGS (18)
  1. CABOMETYX [Suspect]
     Active Substance: CABOZANTINIB S-MALATE
     Indication: METASTASES TO LIVER
     Dosage: 40 MG, QD
     Route: 048
     Dates: start: 20160505, end: 2016
  2. IRON [Concomitant]
     Active Substance: IRON
  3. MORPHINE [Concomitant]
     Active Substance: MORPHINE
  4. PROCHLORPERAZINE. [Concomitant]
     Active Substance: PROCHLORPERAZINE
  5. CELEXA [Concomitant]
     Active Substance: CITALOPRAM HYDROBROMIDE
  6. HUMALOG [Concomitant]
     Active Substance: INSULIN LISPRO
  7. OXYCODONE [Concomitant]
     Active Substance: OXYCODONE
  8. CABOMETYX [Suspect]
     Active Substance: CABOZANTINIB S-MALATE
     Indication: RENAL CANCER
     Dosage: 60 MG, QD
     Route: 048
     Dates: start: 2016, end: 2016
  9. CABOMETYX [Suspect]
     Active Substance: CABOZANTINIB S-MALATE
     Dosage: 40 MG, QD
     Route: 048
     Dates: start: 2017
  10. HYDROCHLOROTHIAZIDE. [Concomitant]
     Active Substance: HYDROCHLOROTHIAZIDE
  11. HYDROCODONE [Concomitant]
     Active Substance: HYDROCODONE
  12. LEVOTHYROXINE. [Concomitant]
     Active Substance: LEVOTHYROXINE
  13. FLOMAX [Concomitant]
     Active Substance: TAMSULOSIN HYDROCHLORIDE
  14. CITALOPRAM [Concomitant]
     Active Substance: CITALOPRAM HYDROBROMIDE
  15. GABAPENTIN. [Concomitant]
     Active Substance: GABAPENTIN
  16. TAMSULOSIN [Concomitant]
     Active Substance: TAMSULOSIN
  17. FISH OIL [Concomitant]
     Active Substance: FISH OIL
  18. ASPIRIN. [Concomitant]
     Active Substance: ASPIRIN

REACTIONS (4)
  - Productive cough [Unknown]
  - Osteomyelitis [Recovered/Resolved]
  - Nasal discharge discolouration [Unknown]
  - Sleep apnoea syndrome [Unknown]
